FAERS Safety Report 16767007 (Version 1)
Quarter: 2019Q3

REPORT INFORMATION
  Report Type: Spontaneous
  Country: US (occurrence: US)
  Receive Date: 20190903
  Receipt Date: 20190903
  Transmission Date: 20191005
  Serious: No
  Sender: FDA-Public Use
  Company Number: US-PFIZER INC-2019375114

PATIENT
  Age: 68 Year
  Sex: Female
  Weight: 100.68 kg

DRUGS (1)
  1. ATORVASTATIN CALCIUM. [Suspect]
     Active Substance: ATORVASTATIN CALCIUM
     Dosage: 1 DF, DAILY (TAKE 1 TABLET BY MOUTH DAILY WITH DINNER)
     Route: 048

REACTIONS (1)
  - Pruritus [Unknown]
